FAERS Safety Report 16863818 (Version 2)
Quarter: 2022Q3

REPORT INFORMATION
  Report Type: Spontaneous
  Country: US (occurrence: US)
  Receive Date: 20190927
  Receipt Date: 20220905
  Transmission Date: 20221026
  Serious: Yes (Disabling)
  Sender: FDA-Public Use
  Company Number: US-TEVA-2019-US-1114572

PATIENT
  Sex: Female

DRUGS (2)
  1. TAXOTERE [Suspect]
     Active Substance: DOCETAXEL
     Indication: Breast cancer female
     Dosage: DOSE: 172 MG 4 CYCLES EVERY 3 WEEKS
     Route: 065
     Dates: start: 20140911, end: 20141113
  2. DOCETAXEL [Suspect]
     Active Substance: DOCETAXEL
     Indication: Breast cancer female
     Dosage: DOSE: 172 MG 4 CYCLES EVERY 3 WEEKS
     Route: 065
     Dates: start: 20140911, end: 20141113

REACTIONS (1)
  - Alopecia [Not Recovered/Not Resolved]
